FAERS Safety Report 4619523-5 (Version None)
Quarter: 2005Q1

REPORT INFORMATION
  Report Type: 
  Country: None (occurrence: None)
  Receive Date: 20050325
  Receipt Date: 20050317
  Transmission Date: 20050727
  Serious: Yes (Other)
  Sender: FDA-Public Use
  Company Number: SE-NOVOPROD-243037

PATIENT
  Age: 18 Year
  Sex: Male

DRUGS (2)
  1. LANTUS [Suspect]
     Indication: DIABETES MELLITUS
     Dates: start: 20030401
  2. NOVORAPID [Suspect]
     Indication: DIABETES MELLITUS
     Dates: start: 20030401

REACTIONS (1)
  - CATARACT [None]
